FAERS Safety Report 10149465 (Version 1)
Quarter: 2014Q2

REPORT INFORMATION
  Report Type: Spontaneous
  Country: US (occurrence: US)
  Receive Date: 20140502
  Receipt Date: 20140502
  Transmission Date: 20141212
  Serious: No
  Sender: FDA-Public Use
  Company Number: US-009507513-1404USA013690

PATIENT
  Age: 34 Year
  Sex: Female
  Weight: 70.3 kg

DRUGS (5)
  1. NEXPLANON [Suspect]
     Indication: CONTRACEPTION
     Dosage: SINGLE ROD
     Route: 059
     Dates: start: 20140314
  2. IRON (UNSPECIFIED) [Concomitant]
  3. VITAMINS (UNSPECIFIED) [Concomitant]
  4. ADDERALL TABLETS [Concomitant]
  5. VALACYCLOVIR HYDROCHLORIDE [Concomitant]

REACTIONS (1)
  - Unintended pregnancy [Unknown]
